FAERS Safety Report 10694776 (Version 1)
Quarter: 2015Q1

REPORT INFORMATION
  Report Type: Spontaneous
  Country: US (occurrence: None)
  Receive Date: 20150105
  Receipt Date: 20150105
  Transmission Date: 20150721
  Serious: No
  Sender: FDA-Public Use
  Company Number: None

PATIENT
  Sex: Female
  Weight: 56.7 kg

DRUGS (6)
  1. HUMIRA [Suspect]
     Active Substance: ADALIMUMAB
     Indication: CROHN^S DISEASE
     Dosage: 40MG, IM, TWICE MONTHLY, INJECTION
     Route: 030
     Dates: start: 201403, end: 201409
  2. OXCARBAZEPINE. [Concomitant]
     Active Substance: OXCARBAZEPINE
  3. PHENYTOIN. [Concomitant]
     Active Substance: PHENYTOIN
  4. IRON [Concomitant]
     Active Substance: IRON
  5. TYLENOL [Concomitant]
     Active Substance: ACETAMINOPHEN
  6. GABAPENTIN. [Concomitant]
     Active Substance: GABAPENTIN

REACTIONS (3)
  - Seizure [None]
  - Brain neoplasm [None]
  - Cardiac disorder [None]
